FAERS Safety Report 6855551-7 (Version None)
Quarter: 2010Q3

REPORT INFORMATION
  Report Type: 
  Country: None (occurrence: None)
  Receive Date: 20100719
  Receipt Date: 20100712
  Transmission Date: 20110219
  Serious: Yes (Other)
  Sender: FDA-Public Use
  Company Number: US-JNJFOC-20100703626

PATIENT
  Age: 5 Decade
  Sex: Female

DRUGS (1)
  1. LEVAQUIN [Suspect]
     Indication: SINUS OPERATION
     Route: 048

REACTIONS (2)
  - TENDON RUPTURE [None]
  - THROMBOSIS [None]
